FAERS Safety Report 4407737-9 (Version None)
Quarter: 2004Q3

REPORT INFORMATION
  Report Type: 
  Country: None (occurrence: None)
  Receive Date: 20040721
  Receipt Date: 20040709
  Transmission Date: 20050211
  Serious: Yes (Hospitalization)
  Sender: FDA-Public Use
  Company Number: 207598

PATIENT
  Age: 61 Year
  Sex: Female
  Weight: 38.1 kg

DRUGS (5)
  1. AVASTIN [Suspect]
     Indication: COLON CANCER METASTATIC
     Dosage: 200 MG, Q2W, INTRAVENOUS
     Route: 042
  2. IRINOTECAN(IRINOTECAN HYDROCHLORIDE) [Suspect]
     Indication: COLON CANCER METASTATIC
     Dosage: 65 MG, 1/WEEK, INTRAVENOUS
     Route: 042
  3. FLUOROURACIL [Suspect]
     Indication: COLON CANCER METASTATIC
     Dosage: 350 MG, 1/WEEK, INTRAVENOUS
     Route: 042
  4. LEUCOVORIN CALCIUM [Suspect]
     Indication: COLON CANCER METASTATIC
     Dosage: 15 MG, 1/WEEK, INTRAVENOUS
     Route: 042
  5. POTASSIUM SUPPLEMENT (POTASSIUM NOS) [Concomitant]

REACTIONS (4)
  - BLOOD CALCIUM DECREASED [None]
  - BLOOD POTASSIUM DECREASED [None]
  - DIARRHOEA [None]
  - HYPOMAGNESAEMIA [None]
